FAERS Safety Report 17127363 (Version 1)
Quarter: 2019Q4

REPORT INFORMATION
  Report Type: Report from Study
  Country: IT (occurrence: IT)
  Receive Date: 20191209
  Receipt Date: 20191209
  Transmission Date: 20200122
  Serious: Yes (Other)
  Sender: FDA-Public Use
  Company Number: IT-TEVA-2019-IT-1147918

PATIENT
  Age: 43 Year
  Sex: Female

DRUGS (2)
  1. DICLOFENAC [Suspect]
     Active Substance: DICLOFENAC
     Dosage: 1 DOSAGE FORMS AS REQUIRED
     Route: 048
     Dates: start: 20191023, end: 20191023
  2. ROBILAS 20 MG COMPRESSE [Concomitant]
     Dates: start: 20191019, end: 20191023

REACTIONS (3)
  - Eyelid oedema [Recovering/Resolving]
  - Rash [Recovering/Resolving]
  - Lip oedema [Recovering/Resolving]

NARRATIVE: CASE EVENT DATE: 20191023
